FAERS Safety Report 4391460-3 (Version None)
Quarter: 2004Q3

REPORT INFORMATION
  Report Type: 
  Country: None (occurrence: None)
  Receive Date: 20040701
  Receipt Date: 20040621
  Transmission Date: 20050211
  Serious: Yes (Hospitalization)
  Sender: FDA-Public Use
  Company Number: TEST00204001537

PATIENT
  Age: 62 Year
  Sex: Male
  Weight: 90.7194 kg

DRUGS (6)
  1. ANDROGEL [Suspect]
     Indication: MULTIPLE SCLEROSIS
     Dosage: 10 G QD TD
     Route: 062
     Dates: start: 20040122
  2. NORVASC [Concomitant]
  3. DIOVAN [Concomitant]
  4. HYDROCHLOROTHIAZIDE [Concomitant]
  5. CRESTOR [Concomitant]
  6. TOPROL-XL [Concomitant]

REACTIONS (1)
  - CHEST PAIN [None]
